FAERS Safety Report 16939922 (Version 3)
Quarter: 2020Q1

REPORT INFORMATION
  Report Type: Spontaneous
  Country: FR (occurrence: FR)
  Receive Date: 20191021
  Receipt Date: 20200122
  Transmission Date: 20200409
  Serious: Yes (Hospitalization)
  Sender: FDA-Public Use
  Company Number: FR-SUN PHARMACEUTICAL INDUSTRIES LTD-2019RR-224206

PATIENT
  Age: 68 Year
  Sex: Female
  Weight: 45 kg

DRUGS (7)
  1. JAKAVI 15 MG, COMPRIME [Suspect]
     Active Substance: RUXOLITINIB PHOSPHATE
     Indication: PRIMARY MYELOFIBROSIS
     Dosage: 1 DOSAGE FORM, DAILY
     Route: 048
     Dates: start: 2015
  2. SERETIDE [Suspect]
     Active Substance: FLUTICASONE PROPIONATE\SALMETEROL XINAFOATE
     Indication: CHRONIC OBSTRUCTIVE PULMONARY DISEASE
     Dosage: 2 DOSAGE FORMS, DAILY
     Route: 055
  3. CETIRIZINE [Suspect]
     Active Substance: CETIRIZINE HYDROCHLORIDE
     Indication: PRODUCT USED FOR UNKNOWN INDICATION
     Dosage: 10 MILLIGRAMS, DAILY
     Route: 048
  4. EXJADE [Suspect]
     Active Substance: DEFERASIROX
     Indication: PRIMARY MYELOFIBROSIS
     Dosage: 1 DF, Q48H
     Route: 048
     Dates: start: 2015
  5. ZELITREX 500 MG, COMPRIME ENROBE [Suspect]
     Active Substance: VALACYCLOVIR HYDROCHLORIDE
     Indication: PROPHYLAXIS
     Dosage: 1 DOSAGE FORM, DAILY
     Route: 048
     Dates: start: 2015
  6. TIOTROPIUM BASE [Suspect]
     Active Substance: TIOTROPIUM
     Indication: CHRONIC OBSTRUCTIVE PULMONARY DISEASE
     Dosage: 2 DOSAGE FORMS, DAILY
     Route: 055
  7. ARANESP [Suspect]
     Active Substance: DARBEPOETIN ALFA
     Indication: PRIMARY MYELOFIBROSIS
     Dosage: 1 DOSAGE FORM, 1 DOSE/3 WEEKS
     Route: 058
     Dates: start: 2015

REACTIONS (4)
  - Eye infection bacterial [Recovering/Resolving]
  - Ischaemic stroke [Recovering/Resolving]
  - Fungal endocarditis [Recovering/Resolving]
  - Infective aneurysm [Recovering/Resolving]

NARRATIVE: CASE EVENT DATE: 201909
